FAERS Safety Report 10158410 (Version 1)
Quarter: 2014Q2

REPORT INFORMATION
  Report Type: Report from Study
  Country: US (occurrence: US)
  Receive Date: 20140507
  Receipt Date: 20140507
  Transmission Date: 20141212
  Serious: Yes (Hospitalization)
  Sender: FDA-Public Use
  Company Number: PHEH2014US009158

PATIENT
  Sex: Female

DRUGS (4)
  1. MYFORTIC [Suspect]
     Indication: HYPERTENSIVE NEPHROPATHY
     Dosage: 720 MG, BID
     Dates: start: 20131014
  2. LEVOTHYROXINE [Concomitant]
     Dosage: UNK UKN, UNK
  3. PRAVASTATIN [Concomitant]
     Dosage: UNK UKN, UNK
  4. OMEPRAZOLE [Concomitant]
     Dosage: UNK UKN, UNK

REACTIONS (1)
  - Fistula [Recovering/Resolving]
